FAERS Safety Report 11935904 (Version 3)
Quarter: 2016Q2

REPORT INFORMATION
  Report Type: Spontaneous
  Country: BR (occurrence: BR)
  Receive Date: 20160121
  Receipt Date: 20160419
  Transmission Date: 20160815
  Serious: Yes (Death, Hospitalization, Other)
  Sender: FDA-Public Use
  Company Number: BR-ASTRAZENECA-2016SE04515

PATIENT
  Age: 705 Month
  Sex: Female
  Weight: 66 kg

DRUGS (12)
  1. CONCOR [Concomitant]
     Active Substance: BISOPROLOL FUMARATE
     Indication: INFARCTION
     Dosage: DAILY
     Dates: start: 201507
  2. BRILINTA [Suspect]
     Active Substance: TICAGRELOR
     Indication: INFARCTION
     Route: 048
     Dates: start: 20160120
  3. ASA [Concomitant]
     Active Substance: ASPIRIN
     Indication: ANTICOAGULANT THERAPY
     Dosage: DAILY
     Dates: start: 201507
  4. TREZOR [Concomitant]
     Active Substance: ROSUVASTATIN CALCIUM
     Indication: BLOOD CHOLESTEROL ABNORMAL
     Dosage: DAILY
     Dates: start: 201507
  5. RANITIDINE. [Concomitant]
     Active Substance: RANITIDINE
     Indication: GASTRIC DISORDER
     Dosage: TWO TIMES A DAY
     Dates: start: 201511
  6. CLOPIDOGREL [Concomitant]
     Active Substance: CLOPIDOGREL BISULFATE
  7. BRILINTA [Suspect]
     Active Substance: TICAGRELOR
     Indication: CARDIAC FAILURE
     Route: 048
     Dates: start: 201507
  8. BRILINTA [Suspect]
     Active Substance: TICAGRELOR
     Indication: INFARCTION
     Route: 048
     Dates: start: 201507
  9. SPIRONOLACTONE. [Concomitant]
     Active Substance: SPIRONOLACTONE
     Indication: DIURETIC THERAPY
     Dosage: DAILY
     Dates: start: 201507
  10. FUROSEMIDE. [Concomitant]
     Active Substance: FUROSEMIDE
     Indication: CARDIAC FAILURE
     Dosage: DAILY
     Dates: start: 201507
  11. DIGOXIN. [Concomitant]
     Active Substance: DIGOXIN
     Indication: CARDIAC FAILURE
     Dosage: DAILY
     Dates: start: 201507
  12. BRILINTA [Suspect]
     Active Substance: TICAGRELOR
     Indication: CARDIAC FAILURE
     Route: 048
     Dates: start: 20160120

REACTIONS (10)
  - Product use issue [Recovered/Resolved]
  - Cerebrovascular accident [Fatal]
  - Infarction [Unknown]
  - Decreased appetite [Not Recovered/Not Resolved]
  - Hypersensitivity [Unknown]
  - Vomiting [Recovered/Resolved]
  - Retching [Not Recovered/Not Resolved]
  - Dyspnoea [Unknown]
  - Malaise [Not Recovered/Not Resolved]
  - Off label use [Recovered/Resolved]

NARRATIVE: CASE EVENT DATE: 201507
